FAERS Safety Report 6772002-1 (Version None)
Quarter: 2010Q2

REPORT INFORMATION
  Report Type: 
  Country: None (occurrence: None)
  Receive Date: 20100616
  Receipt Date: 20090609
  Transmission Date: 20101027
  Serious: No
  Sender: FDA-Public Use
  Company Number: US-ASTRAZENECA-2009UW14772

PATIENT
  Age: 87 Year
  Sex: Male
  Weight: 99.8 kg

DRUGS (8)
  1. RHINOCORT [Suspect]
     Dosage: 1 SPRAY EACH NOSTRIL
     Route: 045
  2. COUMADIN [Concomitant]
  3. PLAVIX [Concomitant]
  4. LASIX [Concomitant]
  5. REID NEB [Concomitant]
  6. PROTONIX [Concomitant]
  7. MAGNESIUM [Concomitant]
  8. POTASSIUM [Concomitant]

REACTIONS (1)
  - POSTNASAL DRIP [None]
